FAERS Safety Report 8533896-2 (Version None)
Quarter: 2012Q3

REPORT INFORMATION
  Report Type: 
  Country: None (occurrence: None)
  Receive Date: 20120724
  Receipt Date: 20120719
  Transmission Date: 20120928
  Serious: Yes (Death, Hospitalization)
  Sender: FDA-Public Use
  Company Number: MA-JNJFOC-20120710067

PATIENT
  Age: 37 Year
  Sex: Male

DRUGS (4)
  1. CYCLOPHOSPHAMIDE [Suspect]
     Indication: T-CELL LYMPHOMA
     Dosage: ON DAY1, 8 CYCLES
     Route: 065
  2. VINCRISTINE [Suspect]
     Indication: T-CELL LYMPHOMA
     Dosage: ON DAY1, 8 CYCLES
     Route: 065
  3. PREDNISONE [Suspect]
     Indication: T-CELL LYMPHOMA
     Dosage: ON DAY 2-6, 8 CYCLES
     Route: 065
  4. DOXORUBICIN HYDROCHLORIDE [Suspect]
     Indication: T-CELL LYMPHOMA
     Dosage: ON DAY1, 8 CYCLES
     Route: 042

REACTIONS (2)
  - DRUG EFFECT DECREASED [None]
  - CARDIAC FAILURE CONGESTIVE [None]
